FAERS Safety Report 7967896-8 (Version None)
Quarter: 2011Q4

REPORT INFORMATION
  Report Type: 
  Country: None (occurrence: None)
  Receive Date: 20111122
  Receipt Date: 20110901
  Transmission Date: 20120403
  Serious: No
  Sender: FDA-Public Use
  Company Number: PHHY2011US64801

PATIENT
  Sex: Female

DRUGS (8)
  1. TRAZODONE HCL [Concomitant]
  2. GILENYA [Suspect]
     Dosage: 0.5 MG, QD, ORAL
     Route: 048
     Dates: start: 20110712
  3. EFFEXOR XR [Concomitant]
  4. MULTIVITAMIN [Concomitant]
  5. FISH OIL (FISH OIL) [Concomitant]
  6. NEURONTIN [Concomitant]
  7. PRAVASTATIN [Concomitant]
  8. VIIBRYD [Suspect]
     Dosage: 10 MG 20 MG 40 MG

REACTIONS (2)
  - FEELING ABNORMAL [None]
  - NAUSEA [None]
